FAERS Safety Report 5053541-0 (Version None)
Quarter: 2006Q3

REPORT INFORMATION
  Report Type: 
  Country: None (occurrence: None)
  Receive Date: 20060712
  Receipt Date: 20060629
  Transmission Date: 20061208
  Serious: Yes (Other)
  Sender: FDA-Public Use
  Company Number: 200610640BFR

PATIENT
  Age: 76 Year
  Sex: Male
  Weight: 90 kg

DRUGS (2)
  1. NEXAVAR [Suspect]
     Indication: METASTATIC RENAL CELL CARCINOMA
     Dosage: 200 MG BID ORAL
     Route: 048
     Dates: start: 20060609, end: 20060701
  2. NEXAVAR [Suspect]
     Indication: METASTATIC RENAL CELL CARCINOMA
     Dosage: 200 MG BID ORAL
     Route: 048
     Dates: start: 20060701

REACTIONS (4)
  - DRUG ERUPTION [None]
  - EOSINOPHILIA [None]
  - MUCOSAL EROSION [None]
  - URTICARIA PAPULAR [None]
